FAERS Safety Report 7417849-3 (Version None)
Quarter: 2011Q2

REPORT INFORMATION
  Report Type: 
  Country: None (occurrence: None)
  Receive Date: 20110415
  Receipt Date: 20110408
  Transmission Date: 20111010
  Serious: Yes (Other)
  Sender: FDA-Public Use
  Company Number: CA-PFIZER INC-2011079285

PATIENT
  Age: 14 Year
  Sex: Female

DRUGS (7)
  1. PREVACID [Concomitant]
     Dosage: UNK
  2. PREMARIN [Suspect]
     Dosage: 1.25 UNK, UNK
     Dates: start: 20100101
  3. PREMARIN [Suspect]
     Dosage: 0.625 UNK, UNK
     Dates: start: 20110101
  4. NAPROXEN [Suspect]
     Dosage: UNK
     Dates: end: 20110301
  5. LEVONORGESTREL + ETHINYL ESTRADIOL [Suspect]
     Dosage: 0.03 UNK, UNK
  6. GRAVOL TAB [Concomitant]
     Dosage: UNK
  7. EMPRACET [Concomitant]
     Dosage: OCCASIONALLY

REACTIONS (2)
  - SYNCOPE [None]
  - GASTRIC ULCER [None]
